FAERS Safety Report 18257159 (Version 2)
Quarter: 2020Q4

REPORT INFORMATION
  Report Type: Spontaneous
  Country: BE (occurrence: BE)
  Receive Date: 20200911
  Receipt Date: 20201012
  Transmission Date: 20210113
  Serious: Yes (Other)
  Sender: FDA-Public Use
  Company Number: BE-PFIZER INC-2020347389

PATIENT
  Age: 35 Year
  Sex: Female
  Weight: 49 kg

DRUGS (3)
  1. BISOPROLOL [Concomitant]
     Active Substance: BISOPROLOL
     Dosage: UNK
  2. DEPO-PROVERA [Suspect]
     Active Substance: MEDROXYPROGESTERONE ACETATE
     Indication: CONTRACEPTION
     Dosage: 1 DF, EVERY 3 MONTHS (ONCE EVERY 12 WEEKS)
     Route: 030
     Dates: start: 20110215, end: 20200824
  3. ALPRAZOLAM. [Concomitant]
     Active Substance: ALPRAZOLAM
     Dosage: UNK

REACTIONS (1)
  - Muscle rupture [Recovering/Resolving]

NARRATIVE: CASE EVENT DATE: 20200825
